FAERS Safety Report 5656111-6 (Version None)
Quarter: 2008Q1

REPORT INFORMATION
  Report Type: 
  Country: None (occurrence: None)
  Receive Date: 20080305
  Receipt Date: 20080221
  Transmission Date: 20080703
  Serious: Yes (Other)
  Sender: FDA-Public Use
  Company Number: S08-USA-00219-01

PATIENT
  Age: 38 Year
  Sex: Female

DRUGS (2)
  1. LEXAPRO [Suspect]
     Indication: ANXIETY
     Dosage: 7.5 MG QD PO
     Route: 048
     Dates: start: 20060701, end: 20080128
  2. LEXAPRO [Suspect]
     Indication: DEPRESSION
     Dosage: 7.5 MG QD PO
     Route: 048
     Dates: start: 20060701, end: 20080128

REACTIONS (3)
  - BLINDNESS TRANSIENT [None]
  - LOSS OF CONSCIOUSNESS [None]
  - PETIT MAL EPILEPSY [None]
